FAERS Safety Report 21384555 (Version 1)
Quarter: 2022Q3

REPORT INFORMATION
  Report Type: Spontaneous
  Country: CZ (occurrence: CZ)
  Receive Date: 20220928
  Receipt Date: 20220928
  Transmission Date: 20221026
  Serious: Yes (Hospitalization, Other)
  Sender: FDA-Public Use
  Company Number: CZ-BRISTOL-MYERS SQUIBB COMPANY-2022-109049

PATIENT
  Age: 74 Year
  Sex: Male

DRUGS (9)
  1. NIVOLUMAB [Suspect]
     Active Substance: NIVOLUMAB
     Indication: Colorectal cancer metastatic
     Dosage: DOSE : 3;     FREQ : UNAVAILABLE
     Route: 065
     Dates: start: 20220209, end: 2022
  2. IPILIMUMAB [Suspect]
     Active Substance: IPILIMUMAB
     Indication: Colorectal cancer metastatic
     Dosage: DOSE : 3;     FREQ : UNAVAILABLE
     Route: 065
     Dates: start: 20220209, end: 2022
  3. FENTALIS [FENTANYL] [Concomitant]
     Indication: Product used for unknown indication
     Dosage: 50MCG/H
     Route: 065
  4. NIMESULIDE [Concomitant]
     Active Substance: NIMESULIDE
     Indication: Product used for unknown indication
     Route: 065
  5. MF INDOMETHACIN [Concomitant]
     Indication: Product used for unknown indication
     Dosage: AS NEEDED AGEN,
     Route: 065
  6. POTASSIUM CHLORIDE [Concomitant]
     Active Substance: POTASSIUM CHLORIDE
     Indication: Product used for unknown indication
     Route: 065
  7. LEVOTHYROXINE SODIUM [Concomitant]
     Active Substance: LEVOTHYROXINE SODIUM
     Indication: Product used for unknown indication
     Dosage: 50MCG 1X1 FROM 1.6.
     Route: 065
  8. IBANDRONATE SODIUM [Concomitant]
     Active Substance: IBANDRONATE SODIUM
     Indication: Product used for unknown indication
     Dosage: FROM 1.6. INITIATION OF BISPHOSPHONATE (IASIBON))
     Route: 065
  9. PREDNISONE [Concomitant]
     Active Substance: PREDNISONE
     Indication: Product used for unknown indication
     Dosage: 1MG/KG
     Route: 065

REACTIONS (9)
  - Liver disorder [Unknown]
  - Thyroiditis [Unknown]
  - Enterocolitis [Unknown]
  - Dermatitis [Unknown]
  - Hypothyroidism [Unknown]
  - Polyarthritis [Unknown]
  - Nephritis [Unknown]
  - Osteonecrosis of jaw [Unknown]
  - COVID-19 [Recovered/Resolved]

NARRATIVE: CASE EVENT DATE: 20220324
